FAERS Safety Report 13564412 (Version 1)
Quarter: 2017Q2

REPORT INFORMATION
  Report Type: Spontaneous
  Country: US (occurrence: US)
  Receive Date: 20170519
  Receipt Date: 20170519
  Transmission Date: 20170830
  Serious: No
  Sender: FDA-Public Use
  Company Number: US-PFIZER INC-2017211335

PATIENT
  Age: 52 Year
  Sex: Male
  Weight: 97 kg

DRUGS (9)
  1. CORTEF [Concomitant]
     Active Substance: HYDROCORTISONE
     Indication: ADRENAL INSUFFICIENCY
  2. BYSTOLIC [Concomitant]
     Active Substance: NEBIVOLOL HYDROCHLORIDE
     Dosage: 5 MG, DAILY
     Route: 048
  3. LEXAPRO [Concomitant]
     Active Substance: ESCITALOPRAM OXALATE
     Dosage: 20 MG, DAILY
     Route: 048
  4. HYDROCORTISONE CYPIONATE [Concomitant]
     Active Substance: HYDROCORTISONE CYPIONATE
     Dosage: 1 ML, UNK (EVERY FOURTEEN DAYS)
     Route: 030
  5. GENOTROPIN MQ [Suspect]
     Active Substance: SOMATROPIN
     Indication: BLOOD GROWTH HORMONE
     Dosage: 0.25 ML, DAILY
     Route: 058
     Dates: start: 2009
  6. SYNTHROID [Concomitant]
     Active Substance: LEVOTHYROXINE SODIUM
     Dosage: 175 UG, DAILY (TAKE ONE TABLET BY MOUTH)
     Route: 048
  7. VALIUM [Concomitant]
     Active Substance: DIAZEPAM
     Dosage: 5 MG, DAILY (TAKE 1 TAB BY MOUTH)
     Route: 048
  8. CORTEF [Concomitant]
     Active Substance: HYDROCORTISONE
     Indication: FATIGUE
     Dosage: 30 MG, 2X/DAY (20 MG IN THE MORNING AND 10 MG IN THE AFTERNOON AT 2-3 PM)
     Route: 048
  9. NORVASC [Concomitant]
     Active Substance: AMLODIPINE BESYLATE
     Dosage: 5 MG, DAILY
     Route: 048

REACTIONS (9)
  - Disturbance in attention [Unknown]
  - Fatigue [Not Recovered/Not Resolved]
  - Drug dose omission [Unknown]
  - Anxiety [Not Recovered/Not Resolved]
  - Depression [Not Recovered/Not Resolved]
  - Memory impairment [Unknown]
  - Restlessness [Unknown]
  - Somnolence [Unknown]
  - Asthenia [Unknown]
